FAERS Safety Report 20076308 (Version 2)
Quarter: 2021Q4

REPORT INFORMATION
  Report Type: Spontaneous
  Country: PL (occurrence: PL)
  Receive Date: 20211116
  Receipt Date: 20211122
  Transmission Date: 20220303
  Serious: Yes (Other)
  Sender: FDA-Public Use
  Company Number: PL-POLPHARMA-035141

PATIENT
  Age: 34 Year
  Sex: Male
  Weight: 169 kg

DRUGS (21)
  1. ROCURONIUM [Interacting]
     Active Substance: ROCURONIUM BROMIDE
     Indication: Muscle relaxant therapy
     Dosage: 50 MILLIGRAM (A BOLUS OF 50 MG ROCURONIUM)
     Route: 065
  2. ROCURONIUM [Interacting]
     Active Substance: ROCURONIUM BROMIDE
     Indication: Maintenance of anaesthesia
  3. DESFLURANE [Interacting]
     Active Substance: DESFLURANE
     Indication: Maintenance of anaesthesia
     Dosage: UNK
  4. DESFLURANE [Interacting]
     Active Substance: DESFLURANE
     Indication: Anaesthesia procedure
  5. SUCCINYLCHOLINE [Interacting]
     Active Substance: SUCCINYLCHOLINE
     Indication: Induction of anaesthesia
     Dosage: 150 MILLIGRAM
  6. LIDOCAINE HYDROCHLORIDE [Interacting]
     Active Substance: LIDOCAINE HYDROCHLORIDE
     Indication: Induction of anaesthesia
     Dosage: 200 MILLIGRAM (LIDOCAINE 200 MG IN 100 ML 0.9% NACL)
     Route: 042
  7. MAGNESIUM SULFATE, UNSPECIFIED FORM [Interacting]
     Active Substance: MAGNESIUM SULFATE, UNSPECIFIED FORM
     Indication: Muscle relaxant therapy
     Dosage: 2 GRAM, A DRIP INFUSION OF 1000 ML OPTILYTE WITH 2 G MGSO4
     Route: 042
  8. MAGNESIUM SULFATE, UNSPECIFIED FORM [Interacting]
     Active Substance: MAGNESIUM SULFATE, UNSPECIFIED FORM
     Indication: Maintenance of anaesthesia
  9. LIDOCAINE [Suspect]
     Active Substance: LIDOCAINE
     Indication: Induction of anaesthesia
     Dosage: 200 MG OF LIDOCAINE IN 100 ML OF 0.9% NACL
     Route: 042
  10. PROPOFOL [Suspect]
     Active Substance: PROPOFOL
     Indication: Induction of anaesthesia
     Dosage: 250 MILLIGRAM
  11. PROPOFOL [Suspect]
     Active Substance: PROPOFOL
     Dosage: 200 MILLIGRAM
     Route: 040
  12. DEXAMETHASONE [Suspect]
     Active Substance: DEXAMETHASONE
     Indication: Antiemetic supportive care
     Dosage: 12 MILLIGRAM
  13. DEXAMETHASONE [Suspect]
     Active Substance: DEXAMETHASONE
     Indication: Induction of anaesthesia
  14. CALCIUM CHLORIDE\MAGNESIUM CHLORIDE\POTASSIUM CHLORIDE\SODIUM ACETATE\ [Suspect]
     Active Substance: CALCIUM CHLORIDE\MAGNESIUM CHLORIDE\POTASSIUM CHLORIDE\SODIUM ACETATE\SODIUM CHLORIDE\SODIUM CITRATE
     Indication: Analgesic therapy
     Dosage: 1000 MILLILITER
     Route: 042
  15. SUCCINYLCHOLINE CHLORIDE [Suspect]
     Active Substance: SUCCINYLCHOLINE CHLORIDE
     Indication: Induction of anaesthesia
     Dosage: UNK
  16. FENTANYL [Suspect]
     Active Substance: FENTANYL
     Indication: Induction of anaesthesia
     Dosage: 0.2 MILLIGRAM
  17. METOCLOPRAMID                      /00041901/ [Concomitant]
     Indication: Premedication
     Dosage: 10 MILLIGRAM (A BOLUS OF 50 MG ROCURONIUM)
     Route: 048
  18. NATRIUM CHLORATUM BAXTER [Concomitant]
     Indication: Induction of anaesthesia
     Dosage: 100 MILLILITER (LIDOCAINE 200 MG IN 100 ML 0.9% NACL)
  19. NATRIUM CHLORATUM BAXTER [Concomitant]
     Indication: Premedication
  20. OXYGEN [Concomitant]
     Active Substance: OXYGEN
     Indication: Oxygen therapy
     Dosage: UNK (100% OXYGEN USING A TIGHTLY SEALED FACIAL MASK WITH CPAP 30 CM H2O FOR 3 MINUTES)
  21. PANTOPRAZOLE [Concomitant]
     Active Substance: PANTOPRAZOLE
     Indication: Premedication
     Dosage: 40 MILLIGRAM (1 HOUR BEFORE THE PROCEDURE)
     Route: 048

REACTIONS (4)
  - Drug interaction [Recovered/Resolved]
  - Neuromuscular block prolonged [Recovered/Resolved]
  - Hypotonia [Recovered/Resolved]
  - Product use in unapproved indication [Unknown]
